FAERS Safety Report 4560006-9 (Version None)
Quarter: 2005Q1

REPORT INFORMATION
  Report Type: 
  Country: None (occurrence: None)
  Receive Date: 20050124
  Receipt Date: 20050107
  Transmission Date: 20050727
  Serious: Yes (Hospitalization)
  Sender: FDA-Public Use
  Company Number: 2005008997

PATIENT
  Sex: Male
  Weight: 81.1939 kg

DRUGS (2)
  1. NEOSPORIN [Suspect]
     Indication: WOUND
     Dosage: UNSPECIFIED AMT, PRN, TOPICAL
     Route: 061
     Dates: end: 20050107
  2. VITAMINS (VITAMINS) [Concomitant]

REACTIONS (1)
  - ARTERIAL OCCLUSIVE DISEASE [None]
